FAERS Safety Report 9641270 (Version 2)
Quarter: 2013Q4

REPORT INFORMATION
  Report Type: Spontaneous
  Country: US (occurrence: US)
  Receive Date: 20131023
  Receipt Date: 20131023
  Transmission Date: 20140711
  Serious: No
  Sender: FDA-Public Use
  Company Number: US-PFIZER INC-2013288105

PATIENT
  Sex: Female

DRUGS (3)
  1. PRISTIQ [Suspect]
     Dosage: UNK
  2. BUSPIRONE [Concomitant]
     Dosage: 10 MG, 2X/DAY
  3. CLONAZEPAM [Concomitant]
     Indication: PANIC ATTACK
     Dosage: 1 MG, UNK

REACTIONS (1)
  - Therapeutic response unexpected [Unknown]
